FAERS Safety Report 7377919-5 (Version None)
Quarter: 2011Q1

REPORT INFORMATION
  Report Type: 
  Country: None (occurrence: None)
  Receive Date: 20110328
  Receipt Date: 20110318
  Transmission Date: 20110831
  Serious: Yes (Other)
  Sender: FDA-Public Use
  Company Number: US-B.I. PHARMACEUTICALS,INC./RIDGEFIELD-2011-BP-09082YA

PATIENT
  Sex: Male

DRUGS (9)
  1. COREG [Suspect]
     Route: 048
  2. TAMSULOSIN HCL [Suspect]
     Route: 048
  3. LIPITOR [Suspect]
     Route: 048
  4. PRILOSEC [Suspect]
     Route: 048
  5. AVODART [Suspect]
     Indication: BENIGN PROSTATIC HYPERPLASIA
     Dosage: 1 DF, WEEKLY
     Route: 048
  6. LISINOPRIL [Suspect]
     Route: 048
  7. ASPIRIN [Suspect]
     Route: 048
  8. ACETAMINOPHEN [Suspect]
     Route: 048
  9. HYDROCHLOROTHIAZIDE [Suspect]
     Dosage: UNKNOWN/D
     Route: 048

REACTIONS (2)
  - SYNCOPE [None]
  - DIZZINESS [None]
